FAERS Safety Report 14847001 (Version 2)
Quarter: 2018Q2

REPORT INFORMATION
  Report Type: Report from Study
  Country: US (occurrence: US)
  Receive Date: 20180504
  Receipt Date: 20180517
  Transmission Date: 20180711
  Serious: Yes (Hospitalization)
  Sender: FDA-Public Use
  Company Number: US-ROCHE-2114621

PATIENT
  Age: 61 Year
  Sex: Female
  Weight: 84.5 kg

DRUGS (6)
  1. ZOFRON [Concomitant]
     Active Substance: ONDANSETRON
     Indication: NAUSEA
     Route: 048
     Dates: start: 20150102
  2. VIGIL (MODAFINIL) [Suspect]
     Active Substance: MODAFINIL
     Indication: OVARIAN CANCER
     Dosage: 1X10E7 CELLS/DOSE GIVEN VIA INTRADERMAL INJECTION EVERY 3 WEEKS?MOST RECENT DOSE ON 28/JUN/2017 PRIO
     Route: 023
     Dates: start: 20170607
  3. MILK OF MAGNESIA [Concomitant]
     Active Substance: MAGNESIUM HYDROXIDE
     Indication: CONSTIPATION
     Route: 048
     Dates: start: 20170626
  4. ATEZOLIZUMAB. [Suspect]
     Active Substance: ATEZOLIZUMAB
     Indication: OVARIAN CANCER
     Dosage: MOST RECENT DOSE ON 28/JUN/2017 PRIOR TO ASCITES AND ON 09/AUG/2017 PRIOR TO THROMBOEMBOLIC EVENT
     Route: 042
     Dates: start: 20170607
  5. MIRALAX [Concomitant]
     Active Substance: POLYETHYLENE GLYCOL 3350
     Indication: CONSTIPATION
     Route: 048
     Dates: start: 20161112
  6. NORCO [Concomitant]
     Active Substance: ACETAMINOPHEN\HYDROCODONE BITARTRATE
     Indication: PAIN
     Dosage: 7.5/325
     Route: 048
     Dates: start: 20160405

REACTIONS (2)
  - Embolism [Recovering/Resolving]
  - Ascites [Recovered/Resolved]

NARRATIVE: CASE EVENT DATE: 20170630
